FAERS Safety Report 12923010 (Version 1)
Quarter: 2016Q4

REPORT INFORMATION
  Report Type: Spontaneous
  Country: US (occurrence: US)
  Receive Date: 20161108
  Receipt Date: 20161108
  Transmission Date: 20170207
  Serious: No
  Sender: FDA-Public Use
  Company Number: US-PFIZER INC-2016516989

PATIENT
  Sex: Male

DRUGS (5)
  1. GABAPENTIN. [Suspect]
     Active Substance: GABAPENTIN
     Dosage: 600 MG, UNK
  2. OXYCONTIN [Concomitant]
     Active Substance: OXYCODONE HYDROCHLORIDE
     Indication: PAIN
     Dosage: 240 MG/THREE 80MG TABLETS IN THE MORNING AND EVENING
  3. LANSOPRAZOLE. [Concomitant]
     Active Substance: LANSOPRAZOLE
     Indication: PHANTOM PAIN
  4. OXYCODONE [Concomitant]
     Active Substance: OXYCODONE
     Indication: BREAKTHROUGH PAIN
     Dosage: ONE TO TWO 30MG TABLETS EVERY 6 HOURS AS NEEDED
  5. LANSOPRAZOLE. [Concomitant]
     Active Substance: LANSOPRAZOLE
     Indication: PAIN

REACTIONS (5)
  - Drug ineffective for unapproved indication [Unknown]
  - Product size issue [Unknown]
  - Dysphagia [Unknown]
  - Gastric disorder [Unknown]
  - Paraesthesia [Unknown]
